FAERS Safety Report 22258687 (Version 2)
Quarter: 2023Q2

REPORT INFORMATION
  Report Type: Report from Study
  Country: ES (occurrence: None)
  Receive Date: 20230427
  Receipt Date: 20230511
  Transmission Date: 20230721
  Serious: Yes (Hospitalization)
  Sender: FDA-Public Use
  Company Number: 2023A092519

PATIENT
  Age: 14 Year
  Sex: Male

DRUGS (2)
  1. OLAPARIB [Suspect]
     Active Substance: OLAPARIB
     Indication: Recurrent cancer
     Route: 048
     Dates: start: 20230330, end: 20230416
  2. CERALASERTIB [Suspect]
     Active Substance: CERALASERTIB
     Indication: Recurrent cancer
     Route: 048
     Dates: start: 20230330, end: 20230412

REACTIONS (1)
  - IIIrd nerve disorder [Recovered/Resolved]

NARRATIVE: CASE EVENT DATE: 20230416
